FAERS Safety Report 24788825 (Version 1)
Quarter: 2024Q4

REPORT INFORMATION
  Report Type: Spontaneous
  Country: FR (occurrence: FR)
  Receive Date: 20241230
  Receipt Date: 20241230
  Transmission Date: 20250115
  Serious: Yes (Disabling)
  Sender: ROCHE
  Company Number: FR-ROCHE-10000130455

PATIENT
  Age: 84 Year
  Sex: Female

DRUGS (1)
  1. VABYSMO [Suspect]
     Active Substance: FARICIMAB-SVOA
     Indication: Neovascular age-related macular degeneration
     Route: 050
     Dates: start: 20241002, end: 20241002

REACTIONS (3)
  - Eye haematoma [Unknown]
  - Subretinal haematoma [Not Recovered/Not Resolved]
  - Visual acuity reduced [Unknown]

NARRATIVE: CASE EVENT DATE: 20241108
